FAERS Safety Report 8515917-6 (Version None)
Quarter: 2012Q3

REPORT INFORMATION
  Report Type: 
  Country: None (occurrence: None)
  Receive Date: 20120717
  Receipt Date: 20120713
  Transmission Date: 20120928
  Serious: Yes (Hospitalization, Other)
  Sender: FDA-Public Use
  Company Number: JP-PFIZER INC-2012154292

PATIENT
  Age: 58 Year
  Sex: Female

DRUGS (4)
  1. BIPERIDEN HYDROCHLORIDE TAB [Suspect]
     Indication: DEPRESSION
     Dosage: 6 MG/DAY
     Route: 048
  2. FLUVOXAMINE [Suspect]
     Indication: DEPRESSION
     Dosage: 75 MG/DAY
     Route: 048
  3. ALPRAZOLAM [Suspect]
     Indication: DEPRESSION
     Dosage: 1.2 MG/DAY
     Route: 048
  4. PAROXETINE HYDROCHLORIDE [Suspect]
     Indication: DEPRESSION
     Dosage: 30 MG/DAY
     Route: 048

REACTIONS (3)
  - SYNCOPE [None]
  - LONG QT SYNDROME [None]
  - TORSADE DE POINTES [None]
